FAERS Safety Report 26099469 (Version 1)
Quarter: 2025Q4

REPORT INFORMATION
  Report Type: Spontaneous
  Country: CN (occurrence: CN)
  Receive Date: 20251128
  Receipt Date: 20251128
  Transmission Date: 20260118
  Serious: Yes (Hospitalization, Other)
  Sender: ASTELLAS
  Company Number: CN-ASTELLAS-2025-AER-064869

PATIENT
  Age: 45 Year
  Sex: Male

DRUGS (3)
  1. TACROLIMUS [Suspect]
     Active Substance: TACROLIMUS
     Indication: Liver transplant
     Dosage: DISCONTINUED
     Route: 065
     Dates: start: 2016, end: 202306
  2. TACROLIMUS [Suspect]
     Active Substance: TACROLIMUS
     Dosage: RESTORED AT A REDUCED DOSE
     Route: 065
     Dates: start: 2023
  3. MYCOPHENOLATE MOFETIL [Concomitant]
     Active Substance: MYCOPHENOLATE MOFETIL
     Indication: Liver transplant
     Dosage: CONTINUED
     Route: 065
     Dates: start: 2016

REACTIONS (7)
  - Diffuse large B-cell lymphoma [Recovered/Resolved]
  - Gene mutation [Recovered/Resolved]
  - Post transplant lymphoproliferative disorder [Recovered/Resolved]
  - Metastases to liver [Recovered/Resolved]
  - Intestinal metastasis [Recovered/Resolved]
  - Metastases to bone [Recovered/Resolved]
  - COVID-19 [Recovered/Resolved]

NARRATIVE: CASE EVENT DATE: 20220101
